FAERS Safety Report 8137447-6 (Version None)
Quarter: 2012Q1

REPORT INFORMATION
  Report Type: 
  Country: None (occurrence: None)
  Receive Date: 20120215
  Receipt Date: 20120213
  Transmission Date: 20120608
  Serious: Yes (Other)
  Sender: FDA-Public Use
  Company Number: US-JNJFOC-2008024786

PATIENT
  Sex: Female
  Weight: 61.2 kg

DRUGS (5)
  1. PEPCID AC [Suspect]
     Indication: GASTROOESOPHAGEAL REFLUX DISEASE
     Route: 048
     Dates: start: 20071201, end: 20080919
  2. LIPITOR [Concomitant]
     Indication: HYPERLIPIDAEMIA
     Route: 065
  3. ASTELIN [Concomitant]
     Indication: MULTIPLE ALLERGIES
     Route: 065
  4. BENADRYL [Suspect]
     Route: 048
  5. BENADRYL [Suspect]
     Indication: MULTIPLE ALLERGIES
     Route: 048
     Dates: start: 20071201, end: 20080919

REACTIONS (6)
  - DIARRHOEA HAEMORRHAGIC [None]
  - VOMITING [None]
  - NAUSEA [None]
  - DIARRHOEA [None]
  - ABDOMINAL PAIN UPPER [None]
  - PRODUCT CONTAMINATION [None]
